FAERS Safety Report 19975879 (Version 2)
Quarter: 2021Q4

REPORT INFORMATION
  Report Type: Spontaneous
  Country: US (occurrence: US)
  Receive Date: 20211021
  Receipt Date: 20211021
  Transmission Date: 20220303
  Serious: No
  Sender: FDA-Public Use
  Company Number: US-MDD US OPERATIONS-SUP202109-001866

PATIENT
  Age: 9 Year

DRUGS (2)
  1. QELBREE [Suspect]
     Active Substance: VILOXAZINE HYDROCHLORIDE
     Indication: Product used for unknown indication
     Dosage: 100 MG
  2. QELBREE [Suspect]
     Active Substance: VILOXAZINE HYDROCHLORIDE
     Dosage: 200 MG

REACTIONS (3)
  - Sexually inappropriate behaviour [Recovered/Resolved]
  - Tic [Recovered/Resolved]
  - Abnormal behaviour [Recovered/Resolved]
